FAERS Safety Report 11278720 (Version 1)
Quarter: 2015Q3

REPORT INFORMATION
  Report Type: Spontaneous
  Country: IT (occurrence: IT)
  Receive Date: 20150717
  Receipt Date: 20150717
  Transmission Date: 20151125
  Serious: Yes (Hospitalization)
  Sender: FDA-Public Use
  Company Number: IT-BIOGENIDEC-2015BI097657

PATIENT
  Age: 58 Year
  Sex: Male

DRUGS (3)
  1. OXYBUTIN [Concomitant]
     Active Substance: OXYBUTYNIN
     Route: 048
     Dates: start: 2012
  2. AVONEX [Suspect]
     Active Substance: INTERFERON BETA-1A
     Indication: RELAPSING-REMITTING MULTIPLE SCLEROSIS
     Route: 030
     Dates: start: 20121030, end: 20150704
  3. EUTHYROX [Concomitant]
     Active Substance: LEVOTHYROXINE SODIUM
     Route: 048
     Dates: start: 2010

REACTIONS (1)
  - Mantle cell lymphoma [Unknown]

NARRATIVE: CASE EVENT DATE: 20150615
